FAERS Safety Report 25907647 (Version 2)
Quarter: 2025Q4

REPORT INFORMATION
  Report Type: Report from Study
  Country: CA (occurrence: CA)
  Receive Date: 20251010
  Receipt Date: 20251021
  Transmission Date: 20260117
  Serious: Yes (Other)
  Sender: HLS THERAPEUTICS
  Company Number: CA-HLS-202502425

PATIENT
  Age: 32 Year
  Sex: Female

DRUGS (2)
  1. CLOZARIL [Suspect]
     Active Substance: CLOZAPINE
     Indication: Product used for unknown indication
     Route: 048
     Dates: start: 20250821
  2. CLOZARIL [Suspect]
     Active Substance: CLOZAPINE
     Indication: Product used for unknown indication
     Route: 065
     Dates: start: 20250922

REACTIONS (8)
  - Blood pressure systolic increased [Unknown]
  - Sinus tachycardia [Not Recovered/Not Resolved]
  - Blood pressure diastolic increased [Unknown]
  - C-reactive protein increased [Unknown]
  - Hypotension [Unknown]
  - Haematemesis [Unknown]
  - Self-induced vomiting [Unknown]
  - Electrocardiogram QT prolonged [Unknown]

NARRATIVE: CASE EVENT DATE: 20250920
